FAERS Safety Report 14420486 (Version 1)
Quarter: 2018Q1

REPORT INFORMATION
  Report Type: Spontaneous
  Country: NL (occurrence: NL)
  Receive Date: 20180122
  Receipt Date: 20180122
  Transmission Date: 20180509
  Serious: Yes (Other)
  Sender: FDA-Public Use
  Company Number: NL-MYLANLABS-2018M1004402

PATIENT
  Age: 44 Year
  Sex: Female

DRUGS (6)
  1. ANASTROZOLE. [Suspect]
     Active Substance: ANASTROZOLE
     Indication: METASTASES TO LUNG
  2. ANASTROZOLE. [Suspect]
     Active Substance: ANASTROZOLE
     Indication: ENDOMETRIAL STROMAL SARCOMA
     Dosage: 1 MG, QD, 24 HOUR
     Route: 065
  3. TAMOXIFEN [Suspect]
     Active Substance: TAMOXIFEN
     Indication: METASTASES TO LUNG
  4. TAMOXIFEN [Suspect]
     Active Substance: TAMOXIFEN
     Indication: ENDOMETRIAL STROMAL SARCOMA
     Dosage: 20 MG, QD, 24 HOUR
     Route: 065
     Dates: start: 2005
  5. ANASTROZOLE. [Suspect]
     Active Substance: ANASTROZOLE
     Indication: METASTASES TO LIVER
  6. MEGESTROL ACETATE. [Concomitant]
     Active Substance: MEGESTROL ACETATE
     Indication: ENDOMETRIAL STROMAL SARCOMA
     Dosage: 400 MG, QD, 200 MG, BID
     Route: 065

REACTIONS (4)
  - Drug ineffective [Unknown]
  - Adverse drug reaction [Unknown]
  - Endometrial stromal sarcoma [Unknown]
  - Disease progression [Unknown]

NARRATIVE: CASE EVENT DATE: 201202
